FAERS Safety Report 7119152-8 (Version None)
Quarter: 2010Q4

REPORT INFORMATION
  Report Type: 
  Country: None (occurrence: None)
  Receive Date: 20101123
  Receipt Date: 20100917
  Transmission Date: 20110411
  Serious: No
  Sender: FDA-Public Use
  Company Number: US-MYLANLABS-2010S1017252

PATIENT
  Age: 73 Year
  Sex: Female

DRUGS (4)
  1. AMLODIPINE BESYLATE [Suspect]
     Indication: BLOOD PRESSURE INCREASED
     Route: 048
     Dates: start: 20100628, end: 20100701
  2. AMLODIPINE BESYLATE [Suspect]
     Route: 048
     Dates: start: 20100701
  3. THYROID HORMONES [Concomitant]
  4. ASA [Concomitant]

REACTIONS (6)
  - BREAST INJURY [None]
  - FALL [None]
  - JOINT SWELLING [None]
  - POLLAKIURIA [None]
  - SKELETAL INJURY [None]
  - SYNCOPE [None]
